FAERS Safety Report 23576054 (Version 1)
Quarter: 2024Q1

REPORT INFORMATION
  Report Type: Spontaneous
  Country: IT (occurrence: IT)
  Receive Date: 20240228
  Receipt Date: 20240228
  Transmission Date: 20240410
  Serious: Yes (Hospitalization)
  Sender: FDA-Public Use
  Company Number: None

PATIENT
  Age: 77 Year
  Sex: Male

DRUGS (2)
  1. INLYTA [Suspect]
     Active Substance: AXITINIB
     Indication: Renal cell carcinoma
     Dosage: INLYTA 5MG 56CPR: 2 CP. RIV. /DIE
     Route: 048
     Dates: start: 20240208, end: 20240217
  2. KEYTRUDA [Concomitant]
     Active Substance: PEMBROLIZUMAB
     Indication: Renal cell carcinoma
     Dosage: FREQ:21 D;KEYTRUDA 1 VIAL INFUSION IV 4 ML 25 MG/ML: 200 MG IN INFUSION IV (Q21)
     Route: 042
     Dates: start: 20240118, end: 20240208

REACTIONS (1)
  - Atrioventricular block complete [Recovered/Resolved]

NARRATIVE: CASE EVENT DATE: 20240217
